FAERS Safety Report 19671314 (Version 5)
Quarter: 2022Q1

REPORT INFORMATION
  Report Type: Report from Study
  Country: CA (occurrence: None)
  Receive Date: 20210806
  Receipt Date: 20220303
  Transmission Date: 20220423
  Serious: Yes (Other)
  Sender: FDA-Public Use
  Company Number: CA-ROCHE-2882539

PATIENT
  Age: 68 Year
  Sex: Female
  Weight: 79.8 kg

DRUGS (25)
  1. COBIMETINIB [Suspect]
     Active Substance: COBIMETINIB
     Indication: Non-small cell lung cancer metastatic
     Dosage: DOSE LAST STUDY DRUG ADMIN PRIOR SAE 20 MG?ON 14/JUL/2021, THE PATIENT RECEIVED MOST RECENT DOSE OF
     Route: 048
     Dates: start: 20210317
  2. VEMURAFENIB [Suspect]
     Active Substance: VEMURAFENIB
     Indication: Non-small cell lung cancer metastatic
     Dosage: DOSE LAST STUDY DRUG ADMIN PRIOR SAE 240 MG?ON 16/JUL/2021, SHE RECEIVED MOST RECENT DOSE OF VEMURAF
     Route: 048
     Dates: start: 20210317
  3. ATEZOLIZUMAB [Suspect]
     Active Substance: ATEZOLIZUMAB
     Indication: Non-small cell lung cancer metastatic
     Dosage: ON 24/JUN/2021, SHE RECEIVED LAST STUDY DRUG ADMIN PRIOR SAE 1680 MG?ON DAY 29 (PER PROTOCOL)
     Route: 041
     Dates: start: 20210429
  4. CRESTOR [Concomitant]
     Active Substance: ROSUVASTATIN CALCIUM
     Indication: Dyslipidaemia
     Route: 048
     Dates: start: 200606
  5. ENOXAPARIN [Concomitant]
     Active Substance: ENOXAPARIN
     Indication: Prophylaxis
     Route: 058
     Dates: start: 20210407
  6. FLUTICASONE PROPIONATE [Concomitant]
     Active Substance: FLUTICASONE PROPIONATE
     Indication: Asthma
     Dosage: IH, 125 UG
     Dates: start: 200105
  7. IMODIUM [Concomitant]
     Active Substance: LOPERAMIDE HYDROCHLORIDE
     Indication: Diarrhoea
     Route: 048
     Dates: start: 20210322
  8. PERINDOPRIL [Concomitant]
     Active Substance: PERINDOPRIL
     Indication: Hypertension
     Route: 048
     Dates: start: 200605
  9. ALBUTEROL [Concomitant]
     Active Substance: ALBUTEROL
     Indication: Asthma
     Dosage: INHALANT, 100 UG
     Dates: start: 200101
  10. SENNA [Concomitant]
     Active Substance: SENNA LEAF\SENNOSIDES\SENNOSIDES A AND B
     Indication: Constipation
     Route: 048
     Dates: start: 202012
  11. SLOW K [Concomitant]
     Active Substance: POTASSIUM CHLORIDE
     Indication: Prophylaxis
     Dosage: DOSE:40 OTHER
     Route: 048
     Dates: start: 20210409
  12. PREGABALIN [Concomitant]
     Active Substance: PREGABALIN
     Route: 048
     Dates: start: 20210302
  13. VERAPAMIL [Concomitant]
     Active Substance: VERAPAMIL HYDROCHLORIDE
     Indication: Hypertension
     Route: 048
     Dates: start: 201605
  14. CODEINE [Concomitant]
     Active Substance: CODEINE
     Indication: Back pain
     Route: 048
     Dates: start: 20210331
  15. CODEINE [Concomitant]
     Active Substance: CODEINE
     Indication: Breast pain
  16. CODEINE [Concomitant]
     Active Substance: CODEINE
     Indication: Pain in extremity
  17. ADVIL [Concomitant]
     Active Substance: IBUPROFEN
     Indication: Pyrexia
     Route: 048
     Dates: start: 20210405
  18. PERINDOPRIL [Concomitant]
     Active Substance: PERINDOPRIL
     Indication: Hypertension
     Route: 048
     Dates: start: 200605
  19. BENADRYL [Concomitant]
     Active Substance: DIPHENHYDRAMINE HYDROCHLORIDE
     Indication: Rash maculo-papular
     Route: 042
     Dates: start: 20210527
  20. BENADRYL [Concomitant]
     Active Substance: DIPHENHYDRAMINE HYDROCHLORIDE
     Route: 048
     Dates: start: 20210403
  21. ADENOSINE [Concomitant]
     Active Substance: ADENOSINE
     Indication: Supraventricular tachycardia
     Dosage: 300ML NORMAL SALINE
     Route: 042
     Dates: start: 20210622, end: 20210622
  22. COVID-19 VACCINE [Concomitant]
     Route: 030
     Dates: start: 20210604
  23. SOLU-MEDROL [Concomitant]
     Active Substance: METHYLPREDNISOLONE SODIUM SUCCINATE
     Indication: Blood creatine phosphokinase increased
     Dates: start: 20210408
  24. PANTOPRAZOLE [Concomitant]
     Active Substance: PANTOPRAZOLE
     Route: 048
     Dates: start: 20210423
  25. PREDNISONE [Concomitant]
     Active Substance: PREDNISONE
     Dates: start: 20210512

REACTIONS (1)
  - Papilloedema [Recovering/Resolving]

NARRATIVE: CASE EVENT DATE: 20210716
